FAERS Safety Report 8654852 (Version 2)
Quarter: 2012Q4

REPORT INFORMATION
  Report Type: 
  Country: FR (occurrence: FR)
  Receive Date: 20120709
  Receipt Date: 20120928
  Transmission Date: 20130627
  Serious: Yes (Hospitalization)
  Sender: FDA-Public Use
  Company Number: FR-VIIV HEALTHCARE LIMITED-B0811258A

PATIENT
  Age: 49 None
  Sex: Female

DRUGS (4)
  1. KIVEXA [Suspect]
     Indication: HIV INFECTION CDC CATEGORY B2
     Dosage: 1TAB Per day
     Route: 048
     Dates: start: 20120601, end: 20120621
  2. REYATAZ [Concomitant]
     Indication: HIV INFECTION CDC CATEGORY B2
     Dosage: 300MG Per day
     Route: 048
     Dates: start: 20120601
  3. NORVIR [Concomitant]
     Indication: HIV INFECTION CDC CATEGORY B2
     Dosage: 100MG Per day
     Route: 065
     Dates: start: 20120601
  4. AERIUS [Concomitant]
     Indication: RHINITIS ALLERGIC
     Route: 065

REACTIONS (17)
  - Drug hypersensitivity [Recovered/Resolved]
  - Malaise [Recovered/Resolved]
  - Headache [Recovered/Resolved]
  - Nausea [Recovered/Resolved]
  - Pyrexia [Recovered/Resolved]
  - Asthenia [Recovered/Resolved]
  - Lymphadenopathy [Recovered/Resolved]
  - Inflammation [Recovered/Resolved]
  - Neck pain [Recovered/Resolved]
  - Insomnia [Recovered/Resolved]
  - Chills [Recovered/Resolved]
  - Hyperhidrosis [Recovered/Resolved]
  - Myalgia [Recovered/Resolved]
  - Pruritus [Recovered/Resolved]
  - Tachycardia [Unknown]
  - Hepatomegaly [Unknown]
  - Neutropenia [Recovered/Resolved]
